FAERS Safety Report 19020472 (Version 2)
Quarter: 2024Q2

REPORT INFORMATION
  Report Type: Spontaneous
  Country: US (occurrence: US)
  Receive Date: 20210317
  Receipt Date: 20240419
  Transmission Date: 20240715
  Serious: No
  Sender: FDA-Public Use
  Company Number: US-UNITED THERAPEUTICS-UNT-2021-002471

PATIENT
  Sex: Female
  Weight: 76.19 kg

DRUGS (9)
  1. ORENITRAM [Suspect]
     Active Substance: TREPROSTINIL
     Indication: Pulmonary arterial hypertension
     Dosage: UNK
     Route: 048
     Dates: start: 20190603
  2. ORENITRAM [Suspect]
     Active Substance: TREPROSTINIL
     Dosage: 6.5 MG, Q8H
     Route: 048
  3. ORENITRAM [Suspect]
     Active Substance: TREPROSTINIL
     Indication: Pulmonary arterial hypertension
     Route: 048
  4. ORENITRAM [Suspect]
     Active Substance: TREPROSTINIL
     Indication: Pulmonary arterial hypertension
     Route: 048
  5. ORENITRAM [Suspect]
     Active Substance: TREPROSTINIL
     Dosage: UNK
     Route: 048
  6. ORENITRAM [Suspect]
     Active Substance: TREPROSTINIL
     Indication: Pulmonary arterial hypertension
     Dosage: UNK
     Route: 048
  7. ORENITRAM [Suspect]
     Active Substance: TREPROSTINIL
     Dosage: UNK
     Route: 048
  8. OPSUMIT [Concomitant]
     Active Substance: MACITENTAN
     Indication: Pulmonary arterial hypertension
     Dosage: 10 MG DAILY
     Route: 048
  9. TADALAFIL [Concomitant]
     Active Substance: TADALAFIL
     Indication: Product used for unknown indication
     Dosage: UNK
     Route: 065

REACTIONS (13)
  - Cough [Unknown]
  - Gastrointestinal disorder [Unknown]
  - Dyspnoea exertional [Unknown]
  - Dysphagia [Unknown]
  - Chest pain [Unknown]
  - Dyspnoea at rest [Unknown]
  - Headache [Unknown]
  - Diarrhoea [Unknown]
  - Flushing [Unknown]
  - Gastrooesophageal reflux disease [Not Recovered/Not Resolved]
  - Oesophageal disorder [Unknown]
  - Drug intolerance [Unknown]
  - Therapy non-responder [Unknown]
